FAERS Safety Report 13750275 (Version 3)
Quarter: 2017Q3

REPORT INFORMATION
  Report Type: Spontaneous
  Country: CH (occurrence: CH)
  Receive Date: 20170713
  Receipt Date: 20170817
  Transmission Date: 20171127
  Serious: Yes (Other)
  Sender: FDA-Public Use
  Company Number: CH-LPDUSPRD-20170940

PATIENT
  Age: 40 Year
  Sex: Male
  Weight: 69 kg

DRUGS (9)
  1. VENOFER [Concomitant]
     Active Substance: IRON SUCROSE
     Dosage: UNKNOWN
     Route: 065
  2. ENTYVIO [Concomitant]
     Active Substance: VEDOLIZUMAB
     Dosage: UNKNOWN
     Route: 065
  3. COLESTYRAMINE [Suspect]
     Active Substance: CHOLESTYRAMINE
     Dosage: UNKNOWN
     Route: 065
  4. CALCIMAGON D3 [Concomitant]
     Active Substance: CALCIUM\CHOLECALCIFEROL
     Dosage: UNKNOWN
     Route: 065
  5. ROACCUTANE [Concomitant]
     Active Substance: ISOTRETINOIN
     Dosage: UNKNOWN
     Route: 065
  6. VITAMIN B12 [Concomitant]
     Active Substance: CYANOCOBALAMIN
     Dosage: UNKNOWN
     Route: 065
  7. FERINJECT [Suspect]
     Active Substance: FERRIC CARBOXYMALTOSE
     Route: 041
     Dates: start: 201107, end: 201702
  8. PHOSPHATE [Concomitant]
     Active Substance: UNSPECIFIED INGREDIENT
     Dosage: UNKNOWN
  9. CALCIUM CARBONATE. [Concomitant]
     Active Substance: CALCIUM CARBONATE
     Dosage: UNKNOWN
     Route: 065

REACTIONS (5)
  - Foot fracture [Unknown]
  - Sacroiliac fracture [Unknown]
  - Diabetic nephropathy [Unknown]
  - Stress fracture [Unknown]
  - Vitamin D decreased [Unknown]

NARRATIVE: CASE EVENT DATE: 201312
